FAERS Safety Report 10160681 (Version 2)
Quarter: 2014Q2

REPORT INFORMATION
  Report Type: Spontaneous
  Country: US (occurrence: US)
  Receive Date: 20140508
  Receipt Date: 20140603
  Transmission Date: 20141212
  Serious: No
  Sender: FDA-Public Use
  Company Number: US-009507513-1405USA000540

PATIENT
  Age: 3 Year
  Sex: Male
  Weight: 18.14 kg

DRUGS (2)
  1. MIRALAX [Suspect]
     Indication: CONSTIPATION
     Dosage: 17 G, EVERY 2-3 DAYS
     Route: 048
     Dates: start: 201402, end: 20140415
  2. MIRALAX [Suspect]
     Dosage: 17 G, EVERY 2-3 DAYS
     Route: 048
     Dates: start: 201404

REACTIONS (3)
  - Drug administered to patient of inappropriate age [Unknown]
  - Off label use [Unknown]
  - Product quality issue [Unknown]
